FAERS Safety Report 22140463 (Version 1)
Quarter: 2023Q1

REPORT INFORMATION
  Report Type: Spontaneous
  Country: US (occurrence: None)
  Receive Date: 20230323
  Receipt Date: 20230323
  Transmission Date: 20230417
  Serious: Yes (Hospitalization)
  Sender: FDA-Public Use
  Company Number: None

PATIENT
  Age: 74 Year
  Sex: Male
  Weight: 97.52 kg

DRUGS (8)
  1. LENALIDOMIDE [Suspect]
     Active Substance: LENALIDOMIDE
     Indication: Plasma cell myeloma
     Dosage: FREQUENCY : DAILY;?
     Route: 048
     Dates: start: 202302
  2. CARVEDILOL [Concomitant]
  3. ELIQUIS [Concomitant]
  4. LEVOTHYROXINE [Concomitant]
  5. LOVASTATIN [Concomitant]
  6. OMEPRAZOLE [Concomitant]
  7. OXYCODONE [Concomitant]
  8. TAMSULOSIN [Concomitant]

REACTIONS (7)
  - White blood cell count decreased [None]
  - Blood potassium decreased [None]
  - Joint swelling [None]
  - Knee operation [None]
  - Oedema peripheral [None]
  - Erythema [None]
  - Cellulitis [None]

NARRATIVE: CASE EVENT DATE: 20230315
